FAERS Safety Report 9943767 (Version 2)
Quarter: 2014Q1

REPORT INFORMATION
  Report Type: Report from Study
  Country: US (occurrence: US)
  Receive Date: 20140303
  Receipt Date: 20140303
  Transmission Date: 20141002
  Serious: No
  Sender: FDA-Public Use
  Company Number: US-ABBVIE-12P-163-1010309-00

PATIENT
  Age: 38 Year
  Sex: Female

DRUGS (6)
  1. HUMIRA [Suspect]
     Indication: COLITIS ULCERATIVE
     Dosage: 160MG LOADING DOSE
     Dates: start: 20121116, end: 20121116
  2. HUMIRA [Suspect]
     Dates: end: 201212
  3. HUMIRA [Suspect]
  4. APRISO [Concomitant]
     Indication: COLITIS ULCERATIVE
  5. BIFERA [Concomitant]
     Indication: ANAEMIA
  6. INHALER [Concomitant]
     Indication: BRONCHITIS
     Dates: end: 20121217

REACTIONS (5)
  - Pyrexia [Recovered/Resolved]
  - Muscle tightness [Not Recovered/Not Resolved]
  - Tremor [Recovered/Resolved]
  - Anxiety [Recovered/Resolved]
  - Colitis ulcerative [Unknown]
